FAERS Safety Report 23920975 (Version 2)
Quarter: 2024Q2

REPORT INFORMATION
  Report Type: Spontaneous
  Country: DE (occurrence: DE)
  Receive Date: 20240530
  Receipt Date: 20240628
  Transmission Date: 20240716
  Serious: Yes (Hospitalization, Disabling, Other)
  Sender: FDA-Public Use
  Company Number: None

PATIENT

DRUGS (4)
  1. MENOTROPINS [Suspect]
     Active Substance: MENOTROPINS
     Indication: Assisted reproductive technology
     Dosage: 150 INTERNATIONAL UNIT, DAILY
     Route: 058
  2. MENOTROPINS [Suspect]
     Active Substance: MENOTROPINS
     Indication: Assisted reproductive technology
     Dosage: 150 INTERNATIONAL UNIT, DAILY
     Route: 058
  3. GANIRELIX ACETATE [Concomitant]
     Active Substance: GANIRELIX ACETATE
     Indication: Assisted reproductive technology
     Dosage: 0.25 MG, DAILY
     Route: 065
     Dates: start: 20240219, end: 20240228
  4. TRIPTORELIN ACETATE [Concomitant]
     Active Substance: TRIPTORELIN ACETATE
     Indication: Assisted reproductive technology
     Dosage: 0.2 MG, ONCE/SINGLE
     Dates: start: 20240228, end: 20240228

REACTIONS (1)
  - Tubo-ovarian abscess [Recovered/Resolved with Sequelae]

NARRATIVE: CASE EVENT DATE: 20240502
